FAERS Safety Report 9800960 (Version 2)
Quarter: 2014Q2

REPORT INFORMATION
  Report Type: Report from Study
  Country: JP (occurrence: JP)
  Receive Date: 20140107
  Receipt Date: 20140512
  Transmission Date: 20141212
  Serious: Yes (Hospitalization, Other)
  Sender: FDA-Public Use
  Company Number: JP-ASTELLAS-2013JP014384

PATIENT
  Age: 80 Year
  Sex: Male
  Weight: 45 kg

DRUGS (19)
  1. FUNGUARD [Suspect]
     Indication: PERITONITIS
     Route: 041
     Dates: start: 20131220, end: 20131227
  2. FUNGUARD [Suspect]
     Route: 041
     Dates: start: 20131228, end: 201401
  3. DEGARELIX [Suspect]
     Indication: PROSTATE CANCER
     Dosage: 3.6 MG, MONTHLY
     Route: 058
     Dates: start: 20131114, end: 20131114
  4. DEGARELIX [Suspect]
     Dosage: 10.8 MG, UNKNOWN FREQ.
     Route: 058
     Dates: start: 20131216, end: 20131216
  5. GOSERELIN [Suspect]
     Indication: PROSTATE CANCER
     Dosage: 3.6 MG, EVERY 4 WEEKS
     Route: 058
     Dates: start: 20131114, end: 20131114
  6. GOSERELIN [Suspect]
     Dosage: 10.8 MG, ONCE EVERY THREE MONTH,
     Route: 058
     Dates: start: 20131216, end: 20131216
  7. PABRON GOLD [Concomitant]
     Indication: CHRONIC SINUSITIS
     Route: 048
     Dates: end: 20131212
  8. AZILVA [Concomitant]
     Indication: HYPERTENSION
     Route: 048
     Dates: start: 200612, end: 20131212
  9. HARNAL [Concomitant]
     Indication: DYSURIA
     Dosage: 0.2 MG, ONCE DAILY
     Route: 048
     Dates: start: 200612, end: 20131212
  10. MAGMITT [Concomitant]
     Indication: CONSTIPATION
     Route: 048
     Dates: end: 20131212
  11. PRANLUKAST [Concomitant]
     Indication: BRONCHITIS CHRONIC
     Route: 048
     Dates: end: 20131212
  12. MOBIC [Concomitant]
     Indication: PAIN IN EXTREMITY
     Route: 048
     Dates: end: 20131212
  13. OMEPRAZOLE                         /00661202/ [Concomitant]
     Indication: PERITONITIS
     Route: 041
     Dates: start: 20131213, end: 20140101
  14. KCL [Concomitant]
     Indication: PERITONITIS
     Route: 041
     Dates: start: 20131214, end: 20131221
  15. BFLUID [Concomitant]
     Indication: PERITONITIS
     Route: 041
     Dates: start: 20131214, end: 20131222
  16. PHYSIO 140 [Concomitant]
     Indication: PERITONITIS
     Route: 041
     Dates: start: 20131216, end: 20131221
  17. MEROPEN KIT [Concomitant]
     Indication: PERITONITIS
     Dosage: 0.5 G, THRICE DAILY
     Route: 041
     Dates: start: 20131213, end: 20131222
  18. VANCOMYCIN [Concomitant]
     Indication: PERITONITIS
     Route: 041
     Dates: start: 20131214, end: 20131227
  19. ROHYPNOL [Concomitant]
     Indication: RESTLESSNESS
     Route: 041
     Dates: start: 20131216, end: 20140115

REACTIONS (3)
  - Peritonitis [Recovered/Resolved]
  - Gastrointestinal perforation [Recovered/Resolved]
  - Colon cancer [Recovered/Resolved]
